FAERS Safety Report 8405800-9 (Version None)
Quarter: 2012Q2

REPORT INFORMATION
  Report Type: 
  Country: None (occurrence: None)
  Receive Date: 20120604
  Receipt Date: 20120601
  Transmission Date: 20120825
  Serious: Yes (Life-Threatening, Other)
  Sender: FDA-Public Use
  Company Number: US-PFIZER INC-2012132721

PATIENT
  Sex: Female

DRUGS (1)
  1. CORTEF [Suspect]
     Indication: ADRENAL INSUFFICIENCY
     Dosage: UNK

REACTIONS (3)
  - DRUG INEFFECTIVE [None]
  - ADRENAL INSUFFICIENCY [None]
  - MALAISE [None]
